FAERS Safety Report 9392174 (Version 1)
Quarter: 2013Q3

REPORT INFORMATION
  Report Type: Spontaneous
  Country: CA (occurrence: CA)
  Receive Date: 20130710
  Receipt Date: 20130710
  Transmission Date: 20140515
  Serious: Yes (Hospitalization, Other)
  Sender: FDA-Public Use
  Company Number: CA-MERCK-1307CAN004624

PATIENT
  Sex: Female

DRUGS (1)
  1. EZETROL [Suspect]
     Indication: PRODUCT USED FOR UNKNOWN INDICATION
     Dosage: 10 MG, QD
     Route: 048

REACTIONS (5)
  - Blood count abnormal [Unknown]
  - Colon cancer [Unknown]
  - Asthenia [Unknown]
  - Abdominal pain upper [Unknown]
  - Diarrhoea [Unknown]
